FAERS Safety Report 10051094 (Version 2)
Quarter: 2014Q2

REPORT INFORMATION
  Report Type: Spontaneous
  Country: US (occurrence: US)
  Receive Date: 20140401
  Receipt Date: 20140401
  Transmission Date: 20141212
  Serious: No
  Sender: FDA-Public Use
  Company Number: US-ASTRAZENECA-2012SE51971

PATIENT
  Age: 65 Year
  Sex: Female
  Weight: 65.8 kg

DRUGS (4)
  1. NEXIUM [Suspect]
     Indication: BARRETT^S OESOPHAGUS
     Route: 048
     Dates: end: 20130930
  2. NEXIUM [Suspect]
     Indication: GASTROOESOPHAGEAL REFLUX DISEASE
     Route: 048
     Dates: end: 20130930
  3. APIDRA [Concomitant]
     Indication: DIABETES MELLITUS
  4. LORTAB [Concomitant]
     Indication: PAIN

REACTIONS (5)
  - Gastrooesophageal reflux disease [Unknown]
  - Diabetes mellitus [Unknown]
  - Abdominal pain upper [Unknown]
  - Vomiting [Unknown]
  - Intentional product misuse [Unknown]
